FAERS Safety Report 20720302 (Version 8)
Quarter: 2022Q3

REPORT INFORMATION
  Report Type: Report from Study
  Country: DE (occurrence: DE)
  Receive Date: 20220418
  Receipt Date: 20220904
  Transmission Date: 20221027
  Serious: Yes (Hospitalization)
  Sender: FDA-Public Use
  Company Number: DE-SA-SAC20220412000231

PATIENT
  Age: 76 Year
  Sex: Female
  Weight: 63 kg

DRUGS (14)
  1. ISATUXIMAB [Suspect]
     Active Substance: ISATUXIMAB
     Indication: Plasma cell myeloma
     Dosage: 630 MG, QW
     Dates: start: 20220124, end: 20220227
  2. ISATUXIMAB [Suspect]
     Active Substance: ISATUXIMAB
     Dosage: 630 MG, BIW
     Dates: start: 20220228, end: 20220308
  3. ISATUXIMAB [Suspect]
     Active Substance: ISATUXIMAB
     Dosage: 630 MG, BIW
     Dates: start: 20220404, end: 20220405
  4. DEXAMETHASONE [Suspect]
     Active Substance: DEXAMETHASONE
     Indication: Plasma cell myeloma
  5. DEXAMETHASONE [Suspect]
     Active Substance: DEXAMETHASONE
     Dosage: 20 MG, QW
     Dates: start: 20220420, end: 20220421
  6. CARFILZOMIB [Suspect]
     Active Substance: CARFILZOMIB
     Indication: Plasma cell myeloma
     Dosage: 35 MG, QW
     Dates: start: 20220124, end: 20220227
  7. CARFILZOMIB [Suspect]
     Active Substance: CARFILZOMIB
     Dosage: 35 UNK
     Dates: start: 20220228, end: 20220308
  8. CARFILZOMIB [Suspect]
     Active Substance: CARFILZOMIB
     Dosage: 99 MG, QW
     Dates: start: 20220404, end: 20220404
  9. ASPIRIN [Concomitant]
     Active Substance: ASPIRIN
     Indication: Hypertonia
     Dosage: UNK
     Dates: start: 2021
  10. AMPHOTERICIN B [Concomitant]
     Active Substance: AMPHOTERICIN B
     Dosage: UNK
     Dates: start: 2021
  11. PASPERTIN [METOCLOPRAMIDE;POLIDOCANOL] [Concomitant]
     Dosage: UNK
     Dates: start: 2021
  12. PREGABALIN [Concomitant]
     Active Substance: PREGABALIN
     Dosage: UNK
     Dates: start: 2021
  13. OCTAGAM IMMUNE GLOBULIN (HUMAN) [Concomitant]
     Active Substance: HUMAN IMMUNOGLOBULIN G
     Dosage: UNK
     Dates: start: 20181219
  14. POLYETHYLENE GLYCOLS [Concomitant]
     Active Substance: POLYETHYLENE GLYCOLS
     Dosage: UNK
     Dates: start: 2021

REACTIONS (1)
  - Pyrexia [Recovered/Resolved]

NARRATIVE: CASE EVENT DATE: 20220405
